FAERS Safety Report 8576865-9 (Version None)
Quarter: 2012Q3

REPORT INFORMATION
  Report Type: 
  Country: None (occurrence: None)
  Receive Date: 20120807
  Receipt Date: 20120723
  Transmission Date: 20120928
  Serious: Yes (Hospitalization, Other)
  Sender: FDA-Public Use
  Company Number: US-ACTELION-A-US2010-33471

PATIENT
  Age: 78 Year
  Sex: Female

DRUGS (1)
  1. TRACLEER [Suspect]
     Indication: PULMONARY ARTERIAL HYPERTENSION
     Dosage: UNK MG, UNK
     Route: 048

REACTIONS (14)
  - RENAL FAILURE [None]
  - GOUTY ARTHRITIS [None]
  - DIARRHOEA [None]
  - HEARING IMPAIRED [None]
  - ANAEMIA [None]
  - FALL [None]
  - DEHYDRATION [None]
  - PNEUMONIA [None]
  - CARDIAC FAILURE CONGESTIVE [None]
  - PAIN IN EXTREMITY [None]
  - OEDEMA PERIPHERAL [None]
  - BACK PAIN [None]
  - DYSPNOEA [None]
  - HEART VALVE INCOMPETENCE [None]
